FAERS Safety Report 15916240 (Version 1)
Quarter: 2019Q1

REPORT INFORMATION
  Report Type: Spontaneous
  Country: US (occurrence: US)
  Receive Date: 20190114
  Receipt Date: 20190114
  Transmission Date: 20190417
  Serious: No
  Sender: FDA-Public Use
  Company Number: None

PATIENT
  Age: 3 Year
  Sex: Male

DRUGS (1)
  1. AFINITOR DISPERZ [Suspect]
     Active Substance: EVEROLIMUS
     Dates: start: 20180903

REACTIONS (6)
  - Epilepsy [None]
  - Balance disorder [None]
  - Condition aggravated [None]
  - Therapy cessation [None]
  - Ear infection [None]
  - Fatigue [None]

NARRATIVE: CASE EVENT DATE: 20181226
